FAERS Safety Report 14183654 (Version 1)
Quarter: 2017Q4

REPORT INFORMATION
  Report Type: Spontaneous
  Country: FR (occurrence: FR)
  Receive Date: 20171113
  Receipt Date: 20171113
  Transmission Date: 20180321
  Serious: Yes (Death, Life-Threatening)
  Sender: FDA-Public Use
  Company Number: FR-TEVA-825085ROM

PATIENT
  Age: 49 Year
  Sex: Male

DRUGS (6)
  1. ETOPOSIDE TEVA [Suspect]
     Active Substance: ETOPOSIDE
     Indication: BRONCHIAL CARCINOMA
     Dosage: 100 MG/M2; ON DAYS 1, 2 AND 3
     Route: 042
     Dates: start: 20170908, end: 20170910
  2. PANTOPRAZOLE [Concomitant]
     Active Substance: PANTOPRAZOLE
     Dosage: 20 MILLIGRAM DAILY;
     Route: 065
  3. OXYCODONE LP 20 MG [Concomitant]
     Dosage: 40 MILLIGRAM DAILY;
     Route: 065
  4. CARBOPLATINE ARROW 10 MG/ML [Suspect]
     Active Substance: CARBOPLATIN
     Indication: BRONCHIAL CARCINOMA
     Dosage: 775 MG; ON DAY 1
     Route: 042
     Dates: start: 20170908, end: 20170908
  5. METHYLPREDNISOLONE MERCK [Suspect]
     Active Substance: METHYLPREDNISOLONE
     Indication: BRONCHIAL CARCINOMA
     Dosage: 120 MILLIGRAM DAILY;
     Route: 042
     Dates: start: 20170905, end: 20170909
  6. LOVENOX [Concomitant]
     Active Substance: ENOXAPARIN SODIUM
     Dosage: 4000 IU (INTERNATIONAL UNIT) DAILY;
     Route: 065

REACTIONS (3)
  - Pneumocystis jirovecii pneumonia [Recovered/Resolved with Sequelae]
  - Lymphopenia [Not Recovered/Not Resolved]
  - Infection [Recovered/Resolved with Sequelae]

NARRATIVE: CASE EVENT DATE: 20170911
